FAERS Safety Report 9797067 (Version 1)
Quarter: 2014Q1

REPORT INFORMATION
  Report Type: Spontaneous
  Country: CL (occurrence: CL)
  Receive Date: 20140105
  Receipt Date: 20140105
  Transmission Date: 20141002
  Serious: Yes (Other)
  Sender: FDA-Public Use
  Company Number: CL-PFIZER INC-2013374511

PATIENT
  Age: 88 Year
  Sex: Female

DRUGS (4)
  1. XALATAN [Suspect]
     Indication: GLAUCOMA
     Dosage: 1 DF, 1X/DAY
     Dates: start: 2003
  2. VITAMINS [Concomitant]
  3. NONI [Concomitant]
  4. OMEPRAZOLE [Concomitant]

REACTIONS (2)
  - Lens disorder [Recovered/Resolved]
  - Gastrooesophageal reflux disease [Not Recovered/Not Resolved]
